FAERS Safety Report 8855822 (Version 1)
Quarter: 2012Q4

REPORT INFORMATION
  Report Type: Spontaneous
  Country: US (occurrence: None)
  Receive Date: 20121022
  Receipt Date: 20121022
  Transmission Date: 20130627
  Serious: Yes (Other)
  Sender: FDA-Public Use
  Company Number: None

PATIENT
  Age: 66 Year
  Sex: Male
  Weight: 99.79 kg

DRUGS (1)
  1. MAXIDEX [Suspect]
     Indication: CATARACT OPERATION
     Dosage: 1 drop
     Dates: start: 20070428, end: 20070430

REACTIONS (2)
  - Eyelid infection [None]
  - Blindness [None]
